FAERS Safety Report 25535061 (Version 1)
Quarter: 2025Q3

REPORT INFORMATION
  Report Type: Spontaneous
  Country: EU (occurrence: EU)
  Receive Date: 20250709
  Receipt Date: 20250709
  Transmission Date: 20251021
  Serious: Yes (Hospitalization)
  Sender: SANDOZ
  Company Number: None

PATIENT
  Age: 16 Year
  Sex: Female
  Weight: 66 kg

DRUGS (2)
  1. ALPRAZOLAM [Suspect]
     Active Substance: ALPRAZOLAM
     Indication: Intentional product misuse
     Route: 048
     Dates: start: 20250615, end: 20250615
  2. QUETIAPINE [Suspect]
     Active Substance: QUETIAPINE
     Indication: Intentional product misuse
     Route: 048
     Dates: start: 20250615, end: 20250615

REACTIONS (2)
  - Coma [Recovered/Resolved]
  - Poisoning deliberate [Recovered/Resolved]

NARRATIVE: CASE EVENT DATE: 20250615
